FAERS Safety Report 8398660-6 (Version None)
Quarter: 2012Q2

REPORT INFORMATION
  Report Type: 
  Country: None (occurrence: None)
  Receive Date: 20120531
  Receipt Date: 20120522
  Transmission Date: 20120825
  Serious: Yes (Death, Other)
  Sender: FDA-Public Use
  Company Number: JP-ROCHE-1072703

PATIENT
  Sex: Male

DRUGS (23)
  1. ACTEMRA [Suspect]
     Indication: RHEUMATOID ARTHRITIS
     Route: 041
     Dates: start: 20090528, end: 20090528
  2. ACTEMRA [Suspect]
     Route: 041
     Dates: start: 20090611, end: 20090611
  3. ACTEMRA [Suspect]
     Route: 041
     Dates: start: 20100304, end: 20100304
  4. PREDNISOLONE [Concomitant]
     Indication: RHEUMATOID ARTHRITIS
     Route: 048
  5. BETAMETHASONE [Concomitant]
     Indication: RHEUMATOID ARTHRITIS
     Route: 041
     Dates: start: 20090409, end: 20090414
  6. BETAMETHASONE [Concomitant]
     Route: 048
     Dates: start: 20090626, end: 20090703
  7. BETAMETHASONE [Concomitant]
     Route: 048
     Dates: start: 20090730, end: 20090813
  8. ACTEMRA [Suspect]
     Route: 041
     Dates: start: 20100401, end: 20101014
  9. SOLU-MEDROL [Concomitant]
     Route: 041
     Dates: start: 20090415, end: 20090417
  10. FOLIAMIN [Concomitant]
     Indication: PROPHYLAXIS
     Route: 048
     Dates: start: 20090501
  11. RABEPRAZOLE SODIUM [Concomitant]
     Indication: PROPHYLAXIS
     Route: 048
     Dates: start: 20090509
  12. BACTRIM [Concomitant]
     Indication: PROPHYLAXIS
     Route: 048
     Dates: start: 20090422, end: 20091022
  13. INSULIN [Concomitant]
     Indication: DIABETES MELLITUS
     Dosage: DOSAGE IS UNCERTAIN.
     Route: 058
  14. BETAMETHASONE [Concomitant]
     Route: 041
     Dates: start: 20090418, end: 20090508
  15. BETAMETHASONE [Concomitant]
     Route: 048
     Dates: start: 20090716, end: 20090729
  16. RHEUMATREX [Concomitant]
     Indication: RHEUMATOID ARTHRITIS
     Route: 048
     Dates: start: 20090422
  17. SOLU-MEDROL [Concomitant]
     Indication: RHEUMATOID ARTHRITIS
     Route: 041
     Dates: start: 20090406, end: 20090408
  18. BETAMETHASONE [Concomitant]
     Route: 048
     Dates: start: 20090509, end: 20090604
  19. BETAMETHASONE [Concomitant]
     Route: 048
     Dates: start: 20090814, end: 20090910
  20. BETAMETHASONE [Concomitant]
     Route: 048
     Dates: start: 20090704, end: 20090715
  21. BETAMETHASONE [Concomitant]
     Route: 048
     Dates: start: 20090605, end: 20090618
  22. BETAMETHASONE [Concomitant]
     Route: 048
     Dates: start: 20090619, end: 20090625
  23. VOLTAREN-XR [Concomitant]
     Indication: RHEUMATOID ARTHRITIS
     Route: 048
     Dates: start: 20090404, end: 20090604

REACTIONS (3)
  - INFECTION [None]
  - DEATH [None]
  - POLYCYTHAEMIA [None]
